FAERS Safety Report 5625458-1 (Version None)
Quarter: 2008Q1

REPORT INFORMATION
  Report Type: 
  Country: None (occurrence: None)
  Receive Date: 20080211
  Receipt Date: 20080130
  Transmission Date: 20080703
  Serious: Yes (Other)
  Sender: FDA-Public Use
  Company Number: 200801IM00030

PATIENT

DRUGS (5)
  1. INTERFERON GAMMA-1B [Suspect]
     Indication: LYMPHOMA
     Dosage: 0.025 MG/M2,QOD FOR 10 DOSES, SUBCUTANEOUS
     Route: 058
  2. PROLEUKIN [Suspect]
     Indication: LYMPHOMA
     Dosage: 1000000,1 X 10^6 UNITS/M2 FOR 18 DAYS, SUBCUTANEOUS
     Route: 058
  3. NEUPOGEN [Suspect]
     Indication: LYMPHOMA
     Dosage: UL, 10,000/MM3 ONCE, OR 5,000/MM3 TWICE
  4. NEORAL [Suspect]
     Indication: LYMPHOMA
     Dosage: 2 MG/KG,BID IV OR PO
     Route: 048
  5. CYCLOPHOSPHAMIDE [Concomitant]

REACTIONS (3)
  - DRUG TOXICITY [None]
  - GRAFT VERSUS HOST DISEASE [None]
  - VENOOCCLUSIVE DISEASE [None]
